FAERS Safety Report 21204156 (Version 2)
Quarter: 2022Q3

REPORT INFORMATION
  Report Type: Spontaneous
  Country: BR (occurrence: BR)
  Receive Date: 20220812
  Receipt Date: 20220816
  Transmission Date: 20221027
  Serious: Yes (Other)
  Sender: FDA-Public Use
  Company Number: BR-CELLTRION INC.-2022BR012670

PATIENT

DRUGS (1)
  1. INFLIXIMAB [Suspect]
     Active Substance: INFLIXIMAB
     Indication: Ankylosing spondylitis
     Dosage: 280 MG, EVERY 12 WEEKS (ROUTE OF ADMINISTRATION: ENDOVENOUS)

REACTIONS (13)
  - Neck pain [Unknown]
  - Neck pain [Unknown]
  - Musculoskeletal chest pain [Unknown]
  - Peripheral swelling [Unknown]
  - Arthralgia [Unknown]
  - Arthralgia [Unknown]
  - Pain in extremity [Unknown]
  - Pain [Unknown]
  - Treatment delayed [Unknown]
  - Feeling abnormal [Unknown]
  - Prescribed underdose [Unknown]
  - Off label use [Unknown]
  - Product dose omission issue [Unknown]
